FAERS Safety Report 16633364 (Version 3)
Quarter: 2019Q3

REPORT INFORMATION
  Report Type: Spontaneous
  Country: FR (occurrence: FR)
  Receive Date: 20190725
  Receipt Date: 20190816
  Transmission Date: 20191004
  Serious: Yes (Other)
  Sender: FDA-Public Use
  Company Number: PHHY2019FR172047

PATIENT
  Age: 66 Year
  Sex: Female

DRUGS (3)
  1. METHYLPREDNISOLONE. [Suspect]
     Active Substance: METHYLPREDNISOLONE
     Indication: MYOSITIS
  2. METHYLPREDNISOLONE. [Suspect]
     Active Substance: METHYLPREDNISOLONE
     Indication: MYOCARDITIS
     Dosage: UNK
     Route: 065
  3. NIVOLUMAB [Concomitant]
     Active Substance: NIVOLUMAB
     Indication: LUNG CANCER METASTATIC
     Dosage: 240 MG, EVERY 15 DAYS
     Route: 065

REACTIONS (6)
  - Muscular weakness [Recovering/Resolving]
  - Facial paralysis [Recovering/Resolving]
  - Troponin T increased [Recovering/Resolving]
  - Arrhythmia [Recovering/Resolving]
  - Ventricular extrasystoles [Recovering/Resolving]
  - Product use in unapproved indication [Unknown]
